FAERS Safety Report 18289512 (Version 1)
Quarter: 2020Q3

REPORT INFORMATION
  Report Type: Spontaneous
  Country: US (occurrence: US)
  Receive Date: 20200921
  Receipt Date: 20200921
  Transmission Date: 20201103
  Serious: No
  Sender: FDA-Public Use
  Company Number: US-BRAINTREE LABORATORIES-190672

PATIENT
  Age: 56 Year
  Sex: Female
  Weight: 95.25 kg

DRUGS (1)
  1. SUPREP BOWEL PREP [Suspect]
     Active Substance: MAGNESIUM SULFATE\POTASSIUM SULFATE\SODIUM SULFATE
     Indication: COLONOSCOPY
     Dosage: 1 X 6 OZ. BOTTLE
     Route: 048
     Dates: start: 20191209, end: 20191209

REACTIONS (5)
  - Nausea [None]
  - Headache [None]
  - Feeling hot [None]
  - Abdominal distension [None]
  - Tremor [None]

NARRATIVE: CASE EVENT DATE: 20191209
